FAERS Safety Report 16988779 (Version 1)
Quarter: 2019Q4

REPORT INFORMATION
  Report Type: Spontaneous
  Country: US (occurrence: US)
  Receive Date: 20190919
  Receipt Date: 20190919
  Transmission Date: 20200122
  Serious: Yes (Other)
  Sender: FDA-Public Use
  Company Number: None

PATIENT
  Age: 68 Year
  Sex: Male
  Weight: 83.91 kg

DRUGS (13)
  1. ADVIL [Concomitant]
     Active Substance: IBUPROFEN
  2. VITAMIN C [Concomitant]
     Active Substance: ASCORBIC ACID
  3. ALLOR FLO [Concomitant]
  4. SIMVASTATIN. [Concomitant]
     Active Substance: SIMVASTATIN
  5. VITAMIN D3 [Concomitant]
     Active Substance: CHOLECALCIFEROL
  6. BUSPAR [Concomitant]
     Active Substance: BUSPIRONE HYDROCHLORIDE
  7. PRAZOSIN HCL 2MG CAP [Suspect]
     Active Substance: PRAZOSIN HYDROCHLORIDE
     Indication: SLEEP DISORDER THERAPY
     Dosage: ?          QUANTITY:1 DF DOSAGE FORM;?
     Route: 048
     Dates: start: 20190622, end: 20190622
  8. ROBITUSSIN AC [Concomitant]
  9. SUDAFED [Concomitant]
     Active Substance: PSEUDOEPHEDRINE HYDROCHLORIDE
  10. BENADRYL [Concomitant]
     Active Substance: DIPHENHYDRAMINE HYDROCHLORIDE
  11. METOPROLOL 50MG [Concomitant]
     Active Substance: METOPROLOL
  12. BENZONATATE 200MG [Concomitant]
     Active Substance: BENZONATATE
  13. TYLENOL WITH CODEINE [Concomitant]
     Active Substance: ACETAMINOPHEN\CODEINE PHOSPHATE

REACTIONS (5)
  - Dizziness [None]
  - Middle insomnia [None]
  - Nervousness [None]
  - Heart rate increased [None]
  - Anxiety [None]

NARRATIVE: CASE EVENT DATE: 20190622
